FAERS Safety Report 16409188 (Version 1)
Quarter: 2019Q2

REPORT INFORMATION
  Report Type: Spontaneous
  Country: IT (occurrence: IT)
  Receive Date: 20190610
  Receipt Date: 20190610
  Transmission Date: 20190711
  Serious: Yes (Other)
  Sender: FDA-Public Use
  Company Number: IT-AUROBINDO-AUR-APL-2019-001563

PATIENT

DRUGS (4)
  1. OXALIPLATIN SOLUTION FOR INFUSION [Suspect]
     Active Substance: OXALIPLATIN
     Indication: PANCREATIC CARCINOMA
     Dosage: 150 MILLIGRAM, CYCLICAL
     Route: 042
  2. LEVOLEUCOVORIN INJECTION [Suspect]
     Active Substance: LEVOLEUCOVORIN
     Indication: PANCREATIC CARCINOMA
     Dosage: 370 MILLIGRAM, CYCLICAL
     Route: 042
  3. FLUOROURACIL. [Suspect]
     Active Substance: FLUOROURACIL
     Indication: PANCREATIC CARCINOMA
     Dosage: 740 MILLIGRAM, CYCLICAL
     Route: 042
     Dates: start: 20181204
  4. IRINOTECAN CONCENTRATE FOR SOLUTION FOR INFUSION [Suspect]
     Active Substance: IRINOTECAN
     Indication: PANCREATIC CARCINOMA
     Dosage: 300 MILLIGRAM, CYCLICAL
     Route: 042

REACTIONS (1)
  - Neutropenia [Recovering/Resolving]

NARRATIVE: CASE EVENT DATE: 20181220
